FAERS Safety Report 10626260 (Version 1)
Quarter: 2014Q4

REPORT INFORMATION
  Report Type: Spontaneous
  Country: US (occurrence: US)
  Receive Date: 20141204
  Receipt Date: 20141204
  Transmission Date: 20150529
  Serious: Yes (Hospitalization, Other)
  Sender: FDA-Public Use
  Company Number: US-ACTAVIS-2014-25800

PATIENT
  Sex: Female
  Weight: 3.7 kg

DRUGS (1)
  1. BUPRENORPHINE HYDROCHLORIDE AND NALOXONE HYDROCHLORIDE DIHYDRATE [Suspect]
     Active Substance: BUPRENORPHINE\NALOXONE
     Indication: DRUG DEPENDENCE
     Dosage: 12 MG/ 3 MG DAILY
     Route: 064

REACTIONS (8)
  - Hyperhidrosis [Recovered/Resolved]
  - Grunting [Recovered/Resolved]
  - Tremor [Recovered/Resolved]
  - Drug withdrawal syndrome neonatal [Recovered/Resolved]
  - Irritability [Recovered/Resolved]
  - Tachycardia [Recovered/Resolved]
  - Hypertonia [Recovered/Resolved]
  - Foetal exposure during pregnancy [Recovered/Resolved]
